FAERS Safety Report 23193598 (Version 1)
Quarter: 2023Q4

REPORT INFORMATION
  Report Type: Spontaneous
  Country: US (occurrence: US)
  Receive Date: 20231116
  Receipt Date: 20231116
  Transmission Date: 20240110
  Serious: No
  Sender: FDA-Public Use
  Company Number: US-MTPC-MTDA2023-0026625

PATIENT

DRUGS (1)
  1. RADICAVA [Suspect]
     Active Substance: EDARAVONE
     Indication: Product used for unknown indication
     Dosage: UNK
     Route: 065
     Dates: start: 202211

REACTIONS (2)
  - Fatigue [Recovered/Resolved]
  - Balance disorder [Recovered/Resolved]
